FAERS Safety Report 13780077 (Version 1)
Quarter: 2017Q3

REPORT INFORMATION
  Report Type: Spontaneous
  Country: US (occurrence: US)
  Receive Date: 20170724
  Receipt Date: 20170724
  Transmission Date: 20171127
  Serious: Yes (Other)
  Sender: FDA-Public Use
  Company Number: US-BEH-2017082176

PATIENT
  Sex: Female
  Weight: 61.68 kg

DRUGS (32)
  1. LMX                                /00033401/ [Concomitant]
  2. MULTIVITAMIN                       /00097801/ [Concomitant]
     Active Substance: VITAMINS
  3. MEDROL [Concomitant]
     Active Substance: METHYLPREDNISOLONE
  4. AMIODARONE [Concomitant]
     Active Substance: AMIODARONE
  5. XANAX [Concomitant]
     Active Substance: ALPRAZOLAM
  6. SIMVASTATIN. [Concomitant]
     Active Substance: SIMVASTATIN
  7. FISH OIL [Concomitant]
     Active Substance: FISH OIL
  8. SKELAXIN [Concomitant]
     Active Substance: METAXALONE
  9. METOPROLOL. [Concomitant]
     Active Substance: METOPROLOL
  10. ELIQUIS [Concomitant]
     Active Substance: APIXABAN
  11. LOSARTAN. [Concomitant]
     Active Substance: LOSARTAN
  12. PREDNISONE. [Concomitant]
     Active Substance: PREDNISONE
  13. EFFEXOR [Concomitant]
     Active Substance: VENLAFAXINE HYDROCHLORIDE
  14. ADDERALL [Concomitant]
     Active Substance: AMPHETAMINE ASPARTATE\AMPHETAMINE SULFATE\DEXTROAMPHETAMINE SACCHARATE\DEXTROAMPHETAMINE SULFATE
  15. EPIPEN [Concomitant]
     Active Substance: EPINEPHRINE
  16. LEFLUNOMIDE. [Concomitant]
     Active Substance: LEFLUNOMIDE
  17. SPIRONOLACTONE. [Concomitant]
     Active Substance: SPIRONOLACTONE
  18. BONIVA [Concomitant]
     Active Substance: IBANDRONATE SODIUM
  19. DIPHENHYDRAMINE. [Concomitant]
     Active Substance: DIPHENHYDRAMINE
  20. CIPRO [Concomitant]
     Active Substance: CIPROFLOXACIN HYDROCHLORIDE
  21. MELOXICAM. [Concomitant]
     Active Substance: MELOXICAM
  22. PROAIR HFA [Concomitant]
     Active Substance: ALBUTEROL SULFATE
  23. HIZENTRA [Suspect]
     Active Substance: HUMAN IMMUNOGLOBULIN G
     Indication: IMMUNODEFICIENCY COMMON VARIABLE
     Dosage: 8 G, QW
     Route: 058
     Dates: start: 20111222
  24. METOPROLOL. [Concomitant]
     Active Substance: METOPROLOL
  25. FUROSEMIDE. [Concomitant]
     Active Substance: FUROSEMIDE
  26. DIGOXIN. [Concomitant]
     Active Substance: DIGOXIN
  27. POTASSIUM [Concomitant]
     Active Substance: POTASSIUM
  28. MACROBID [Concomitant]
     Active Substance: NITROFURANTOIN\NITROFURANTOIN MONOHYDRATE
  29. RELPAX [Concomitant]
     Active Substance: ELETRIPTAN HYDROBROMIDE
  30. COENZYME Q10 [Concomitant]
     Active Substance: UBIDECARENONE
  31. HYDROXYCHLOROQUINE [Concomitant]
     Active Substance: HYDROXYCHLOROQUINE
  32. NEXIUM [Concomitant]
     Active Substance: ESOMEPRAZOLE MAGNESIUM

REACTIONS (1)
  - Cardiac disorder [Unknown]
